FAERS Safety Report 4645673-3 (Version None)
Quarter: 2005Q2

REPORT INFORMATION
  Report Type: 
  Country: None (occurrence: None)
  Receive Date: 20050331
  Receipt Date: 20050221
  Transmission Date: 20051028
  Serious: No
  Sender: FDA-Public Use
  Company Number: 05P-163-0291366-00

PATIENT
  Age: 51 Year
  Sex: Female
  Weight: 53.0709 kg

DRUGS (7)
  1. HUMIRA [Suspect]
     Indication: RHEUMATOID ARTHRITIS
     Dosage: 40 MG, 1 IN 2 WK, SUBCUTANEOUS
     Route: 058
     Dates: start: 20050205
  2. FEXOFENADINE HYDROCHLORIDE [Concomitant]
  3. PROVELLA-14 [Concomitant]
  4. VALACYCLOVIR HCL [Concomitant]
  5. BUCINDOLOL HYDROCHLORIDE [Concomitant]
  6. LEFLUNOMIDE [Concomitant]
  7. VICODIN [Concomitant]

REACTIONS (2)
  - INSOMNIA [None]
  - URTICARIA [None]
